FAERS Safety Report 7804509-X (Version None)
Quarter: 2011Q4

REPORT INFORMATION
  Report Type: 
  Country: None (occurrence: None)
  Receive Date: 20111010
  Receipt Date: 20110927
  Transmission Date: 20120403
  Serious: Yes (Hospitalization)
  Sender: FDA-Public Use
  Company Number: PHHO2010AU02118

PATIENT
  Sex: Female
  Weight: 92 kg

DRUGS (3)
  1. EVEROLIMUS [Suspect]
     Indication: LIVER TRANSPLANT
     Dosage: 2 MG, UNK
     Route: 048
     Dates: start: 20100127, end: 20100203
  2. TACROLIMUS [Suspect]
     Indication: LIVER TRANSPLANT
     Dosage: 7 MG, UNK
     Route: 048
     Dates: start: 20100131
  3. BACTRIM DS [Suspect]
     Indication: ANTIFUNGAL PROPHYLAXIS
     Dosage: 800/160 MG, MON, WED, FRI
     Route: 048
     Dates: start: 20100104, end: 20100201

REACTIONS (11)
  - MOUTH ULCERATION [None]
  - ODYNOPHAGIA [None]
  - PYREXIA [None]
  - OESOPHAGEAL ULCER [None]
  - ULCERATIVE KERATITIS [None]
  - CONFUSIONAL STATE [None]
  - LEUKOPENIA [None]
  - RASH ERYTHEMATOUS [None]
  - PHOTOPHOBIA [None]
  - STEVENS-JOHNSON SYNDROME [None]
  - EYE PAIN [None]
